FAERS Safety Report 6869484-3 (Version None)
Quarter: 2010Q3

REPORT INFORMATION
  Report Type: 
  Country: None (occurrence: None)
  Receive Date: 20100722
  Receipt Date: 20080812
  Transmission Date: 20110219
  Serious: No
  Sender: FDA-Public Use
  Company Number: US-PFIZER INC-2008061828

PATIENT
  Age: 24 Year
  Sex: Female
  Weight: 65.77 kg

DRUGS (1)
  1. CHANTIX [Suspect]
     Dates: start: 20080701

REACTIONS (2)
  - BLISTER [None]
  - SKIN EXFOLIATION [None]
